FAERS Safety Report 10692091 (Version 1)
Quarter: 2015Q1

REPORT INFORMATION
  Report Type: Spontaneous
  Country: CN (occurrence: CN)
  Receive Date: 20150106
  Receipt Date: 20150106
  Transmission Date: 20150720
  Serious: Yes (Other)
  Sender: FDA-Public Use
  Company Number: CN-CIPLA LTD.-2014CN02963

PATIENT

DRUGS (2)
  1. TOBRAMYCIN. [Suspect]
     Active Substance: TOBRAMYCIN
     Indication: EYE PAIN
     Dosage: UNK, HOURLY
     Route: 061
  2. LEVOFLOXACIN. [Suspect]
     Active Substance: LEVOFLOXACIN
     Indication: EYE PAIN
     Dosage: UNK, HOURLY
     Route: 061

REACTIONS (2)
  - Drug ineffective [Recovered/Resolved]
  - Ulcerative keratitis [Recovered/Resolved]
